FAERS Safety Report 7102099 (Version 4)
Quarter: 2014Q2

REPORT INFORMATION
  Report Type: Spontaneous
  Country: US (occurrence: US)
  Receive Date: 20090901
  Receipt Date: 20140620
  Transmission Date: 20141212
  Serious: Yes (Hospitalization)
  Sender: FDA-Public Use
  Company Number: US-BAYER-200930911NA

PATIENT
  Age: 42 Year
  Sex: Female
  Weight: 85.71 kg

DRUGS (3)
  1. MIRENA [Suspect]
     Indication: CONTRACEPTION
     Dosage: 20 MCG/24HR, CONT
     Route: 015
     Dates: start: 200706, end: 20090720
  2. ZOLOFT [Concomitant]
     Indication: ANXIETY
     Dosage: DAILY
     Dates: start: 20090708
  3. SINGULAIR [Concomitant]
     Indication: MULTIPLE ALLERGIES
     Dosage: AS NEEDED
     Dates: start: 20090708

REACTIONS (9)
  - Uterine perforation [None]
  - Vaginal haemorrhage [None]
  - Procedural pain [Recovered/Resolved]
  - Depression [None]
  - Anxiety [None]
  - Device issue [Recovered/Resolved]
  - Painful defaecation [None]
  - Device dislocation [None]
  - Back pain [None]
